FAERS Safety Report 15583084 (Version 2)
Quarter: 2019Q1

REPORT INFORMATION
  Report Type: Spontaneous
  Country: FR (occurrence: FR)
  Receive Date: 20181103
  Receipt Date: 20190124
  Transmission Date: 20190417
  Serious: Yes (Hospitalization)
  Sender: FDA-Public Use
  Company Number: FR-SUN PHARMACEUTICAL INDUSTRIES LTD-2018RR-189927

PATIENT
  Age: 34 Year
  Sex: Male
  Weight: 88 kg

DRUGS (3)
  1. KETOPROFENE [Suspect]
     Active Substance: KETOPROFEN
     Indication: ARTHRALGIA
     Dosage: NC ()
     Route: 048
     Dates: start: 201806, end: 201807
  2. OMEPRAZOLE. [Concomitant]
     Active Substance: OMEPRAZOLE
     Indication: PRODUCT USED FOR UNKNOWN INDICATION
     Dosage: NC ()
     Route: 048
     Dates: start: 20180813
  3. IBUPROFENE [Suspect]
     Active Substance: IBUPROFEN
     Indication: ARTHRALGIA
     Dosage: NC ()
     Route: 048
     Dates: start: 20180813

REACTIONS (1)
  - Drug reaction with eosinophilia and systemic symptoms [Recovering/Resolving]

NARRATIVE: CASE EVENT DATE: 20180828
